FAERS Safety Report 17564575 (Version 1)
Quarter: 2020Q1

REPORT INFORMATION
  Report Type: Spontaneous
  Country: US (occurrence: US)
  Receive Date: 20200320
  Receipt Date: 20200320
  Transmission Date: 20200409
  Serious: No
  Sender: FDA-Public Use
  Company Number: US-CIPLA LTD.-2019US02945

PATIENT

DRUGS (1)
  1. SERTRALINE [Suspect]
     Active Substance: SERTRALINE HYDROCHLORIDE
     Indication: DEPRESSION
     Dosage: 100 MILLIGRAM, QD (ONCE DAILY)
     Route: 048
     Dates: start: 20190427

REACTIONS (16)
  - Hypoaesthesia [Unknown]
  - Swelling [Unknown]
  - Decreased appetite [Unknown]
  - Vision blurred [Unknown]
  - Dry mouth [Unknown]
  - Insomnia [Unknown]
  - Nervousness [Unknown]
  - Blister [Unknown]
  - Dizziness [Unknown]
  - Tremor [Unknown]
  - Product dose omission [Unknown]
  - Feeling hot [Unknown]
  - Dysphagia [Unknown]
  - Fatigue [Unknown]
  - Asthenia [Unknown]
  - Abdominal pain [Unknown]

NARRATIVE: CASE EVENT DATE: 20190427
